FAERS Safety Report 10174852 (Version 1)
Quarter: 2014Q2

REPORT INFORMATION
  Report Type: Spontaneous
  Country: US (occurrence: None)
  Receive Date: 20140416
  Receipt Date: 20140416
  Transmission Date: 20141212
  Serious: No
  Sender: FDA-Public Use
  Company Number: 163-POMAL-13071167

PATIENT
  Age: 68 Year
  Sex: Female
  Weight: 90.72 kg

DRUGS (22)
  1. POMALYST [Suspect]
     Indication: PLASMA CELL MYELOMA
     Dosage: 14 IN 14 DAYS
     Route: 048
     Dates: start: 20130529, end: 201310
  2. COREG (CARVEDILOL) [Concomitant]
  3. COUMADIN (WARFARIN SODIUM) [Concomitant]
  4. DOMPERIDONE (DOMPERIDONE) [Concomitant]
  5. EFFEXOR XR [Concomitant]
  6. FLEXERIL [Concomitant]
  7. MORPHINE SULFATE [Concomitant]
  8. NEURONTIN [Concomitant]
  9. NORVASC [Concomitant]
  10. OXYCODONE HCL [Concomitant]
  11. SIMVASTATIN(SIMVASTATIN) [Concomitant]
  12. PROMETHAZINE HCL [Concomitant]
  13. ONDANSETRON [Concomitant]
  14. GABAPENTIN [Concomitant]
  15. CALCITRIOL [Concomitant]
  16. ALLOPURINOL [Concomitant]
  17. XANAX [Concomitant]
  18. CLONIDINE [Concomitant]
  19. DEXILANT [Concomitant]
  20. ANTIBIOTICS [Concomitant]
  21. FOR CHEST CONGESTION [Concomitant]
  22. MORPHINE [Concomitant]

REACTIONS (9)
  - Fall [None]
  - Neuropathy peripheral [None]
  - Dizziness [None]
  - Confusional state [None]
  - Vomiting [None]
  - Constipation [None]
  - Nausea [None]
  - Diarrhoea [None]
  - Decreased appetite [None]
